FAERS Safety Report 26116128 (Version 2)
Quarter: 2025Q4

REPORT INFORMATION
  Report Type: Spontaneous
  Country: EU (occurrence: EU)
  Receive Date: 20251203
  Receipt Date: 20251231
  Transmission Date: 20260117
  Serious: Yes (Hospitalization, Other)
  Sender: AUROBINDO
  Company Number: EU-AFSSAPS-PP2025001088

PATIENT
  Age: 60 Year
  Sex: Female
  Weight: 69 kg

DRUGS (22)
  1. CARBOPLATIN [Suspect]
     Active Substance: CARBOPLATIN
     Indication: Lung adenocarcinoma
     Dosage: 700 MILLIGRAM, CYCLICAL ((700 MG PAR CYCLE))
  2. CARBOPLATIN [Suspect]
     Active Substance: CARBOPLATIN
     Dosage: 700 MILLIGRAM, CYCLICAL ((700 MG PAR CYCLE))
  3. CARBOPLATIN [Suspect]
     Active Substance: CARBOPLATIN
     Dosage: 700 MILLIGRAM, CYCLICAL ((700 MG PAR CYCLE))
  4. CARBOPLATIN [Suspect]
     Active Substance: CARBOPLATIN
     Dosage: 20% DOSE REDUCTION
  5. CARBOPLATIN [Suspect]
     Active Substance: CARBOPLATIN
     Dosage: 500 MILLIGRAM
  6. PEMETREXED [Suspect]
     Active Substance: PEMETREXED
     Indication: Lung adenocarcinoma
     Dosage: 875 MILLIGRAM, CYCLICAL (875 MG PAR CYCLE)
  7. PEMETREXED [Suspect]
     Active Substance: PEMETREXED
     Dosage: 875 MILLIGRAM, CYCLICAL (875 MG PAR CYCLE)
  8. PEMETREXED [Suspect]
     Active Substance: PEMETREXED
     Dosage: 875 MILLIGRAM, CYCLICAL (875 MG PAR CYCLE)
  9. PEMETREXED [Suspect]
     Active Substance: PEMETREXED
     Dosage: 20% DOSE REDUCTION
  10. PEMETREXED [Suspect]
     Active Substance: PEMETREXED
     Dosage: 700 MILLIGRAM
  11. RYBREVANT [Suspect]
     Active Substance: AMIVANTAMAB-VMJW
     Indication: Lung adenocarcinoma
     Dosage: 1400 MILLIGRAM, CYCLICAL (1400 MG/ 3 FOIS PAR CYCLE)
  12. RYBREVANT [Suspect]
     Active Substance: AMIVANTAMAB-VMJW
     Dosage: 20% DOSE REDUCTION
  13. RYBREVANT [Suspect]
     Active Substance: AMIVANTAMAB-VMJW
     Dosage: 1400 MILLIGRAM
  14. BISOPROLOL FUMARATE [Concomitant]
     Active Substance: BISOPROLOL FUMARATE
     Indication: Product used for unknown indication
     Dosage: 1.25 MILLIGRAM
     Route: 065
  15. VERAPAMIL HYDROCHLORIDE [Concomitant]
     Active Substance: VERAPAMIL HYDROCHLORIDE
     Indication: Obstruction gastric
     Dosage: 120 MILLIGRAM
     Route: 065
  16. FOLIC ACID [Concomitant]
     Active Substance: FOLIC ACID
     Indication: Product used for unknown indication
     Dosage: 0.4 MILLIGRAM
     Route: 065
  17. VITAMIN B12 [Concomitant]
     Active Substance: CYANOCOBALAMIN
     Indication: Product used for unknown indication
     Route: 065
  18. OXAZEPAM [Concomitant]
     Active Substance: OXAZEPAM
     Indication: Product used for unknown indication
     Dosage: 10 MILLIGRAM
     Route: 065
  19. DOXYCYCLINE [Concomitant]
     Active Substance: DOXYCYCLINE
     Indication: Product used for unknown indication
     Dosage: UNK
     Route: 065
  20. CLOBEX [Concomitant]
     Active Substance: CLOBETASOL PROPIONATE
     Indication: Product used for unknown indication
     Route: 065
  21. CHLORHEXIDINE GLUCONATE [Concomitant]
     Active Substance: CHLORHEXIDINE GLUCONATE
     Indication: Product used for unknown indication
     Dosage: 1% FOAMING SOLUTION, 1/DAY ON HANDS AND FEET; SKIN EMOLLIENTS, 1/DAY AFTER SHOWERING
     Route: 065
  22. SODIUM BICARBONATE [Concomitant]
     Active Substance: SODIUM BICARBONATE
     Indication: Product used for unknown indication
     Route: 065

REACTIONS (3)
  - Pneumonia [Unknown]
  - Aortic thrombosis [Recovering/Resolving]
  - Supraventricular tachycardia [Unknown]

NARRATIVE: CASE EVENT DATE: 20250630
